FAERS Safety Report 18960745 (Version 1)
Quarter: 2021Q1

REPORT INFORMATION
  Report Type: Spontaneous
  Country: GB (occurrence: GB)
  Receive Date: 20210303
  Receipt Date: 20210303
  Transmission Date: 20210420
  Serious: Yes (Other)
  Sender: FDA-Public Use
  Company Number: GB-ADVANZ PHARMA-202102001590

PATIENT

DRUGS (3)
  1. PREDNISOLONE. [Suspect]
     Active Substance: PREDNISOLONE
     Indication: POLYMYALGIA RHEUMATICA
     Dosage: 15 MG
     Route: 048
     Dates: start: 20190909
  2. CORACTEN [Concomitant]
     Active Substance: NIFEDIPINE
     Dosage: 60 MG
  3. FLUOXETINE [Concomitant]
     Active Substance: FLUOXETINE HYDROCHLORIDE
     Dosage: UNK

REACTIONS (4)
  - Urticaria [Unknown]
  - Incorrect dose administered [Unknown]
  - Genital candidiasis [Not Recovered/Not Resolved]
  - Skin odour abnormal [Unknown]

NARRATIVE: CASE EVENT DATE: 20200410
